FAERS Safety Report 24420192 (Version 2)
Quarter: 2024Q4

REPORT INFORMATION
  Report Type: Report from Study
  Country: US (occurrence: US)
  Receive Date: 20241010
  Receipt Date: 20241018
  Transmission Date: 20250115
  Serious: No
  Sender: ROCHE
  Company Number: US-ROCHE-3532912

PATIENT
  Age: 59 Year
  Sex: Male

DRUGS (4)
  1. ACTIVASE [Suspect]
     Active Substance: ALTEPLASE
     Indication: Fracture displacement
     Dosage: ACTIVASE AND CATHFLO ACTIVASE 2MG AND 100MG
     Route: 065
  2. ACTIVASE [Suspect]
     Active Substance: ALTEPLASE
     Indication: Fracture
  3. CATHFLO ACTIVASE [Suspect]
     Active Substance: ALTEPLASE
     Indication: Fracture displacement
     Dosage: ACTIVASE AND CATHFLO ACTIVASE 2MG AND 100MG
     Route: 065
  4. CATHFLO ACTIVASE [Suspect]
     Active Substance: ALTEPLASE
     Indication: Fracture

REACTIONS (2)
  - Off label use [Unknown]
  - No adverse event [Unknown]
